FAERS Safety Report 6198313-9 (Version None)
Quarter: 2009Q2

REPORT INFORMATION
  Report Type: 
  Country: None (occurrence: None)
  Receive Date: 20090519
  Receipt Date: 20090505
  Transmission Date: 20091009
  Serious: Yes (Hospitalization, Disabling, Other)
  Sender: FDA-Public Use
  Company Number: 2009001380

PATIENT
  Age: 78 Year
  Sex: Female

DRUGS (9)
  1. TARCEVA [Suspect]
     Indication: LUNG NEOPLASM MALIGNANT
     Dosage: (150 MG, QD), ORAL
     Route: 048
     Dates: start: 20090201, end: 20090501
  2. CALCIUM (CALCIUM) [Concomitant]
  3. TOPROL-XL [Concomitant]
  4. AMLODIPINE [Concomitant]
  5. FUROSEMIDE [Concomitant]
  6. LOVASTATIN [Concomitant]
  7. FOSAMAX [Concomitant]
  8. MECLIZINE [Concomitant]
  9. ZOFRAN [Concomitant]

REACTIONS (5)
  - DEEP VEIN THROMBOSIS [None]
  - FOOT AMPUTATION [None]
  - PERIPHERAL EMBOLISM [None]
  - SOFT TISSUE NECROSIS [None]
  - TOE AMPUTATION [None]
